FAERS Safety Report 5769491-8 (Version None)
Quarter: 2008Q2

REPORT INFORMATION
  Report Type: 
  Country: None (occurrence: None)
  Receive Date: 20080612
  Receipt Date: 20080328
  Transmission Date: 20081010
  Serious: No
  Sender: FDA-Public Use
  Company Number: US-ABBOTT-08P-163-0444958-00

PATIENT
  Sex: Female
  Weight: 54.026 kg

DRUGS (3)
  1. HUMIRA [Suspect]
     Indication: RHEUMATOID ARTHRITIS
     Route: 058
     Dates: start: 20030101, end: 20060101
  2. HUMIRA [Suspect]
     Route: 058
     Dates: start: 20060801
  3. METHOTREXATE [Concomitant]
     Indication: RHEUMATOID ARTHRITIS
     Route: 048
     Dates: start: 20020101

REACTIONS (3)
  - ERYTHEMA [None]
  - FUNGAL INFECTION [None]
  - FURUNCLE [None]
